FAERS Safety Report 7346046 (Version 4)
Quarter: 2013Q2

REPORT INFORMATION
  Report Type: Report from Study
  Country: US (occurrence: US)
  Receive Date: 20100406
  Receipt Date: 20130621
  Transmission Date: 20140414
  Serious: Yes (Other)
  Sender: FDA-Public Use
  Company Number: US-PFIZER INC-2009306627

PATIENT
  Age: 44 Year
  Sex: Female
  Weight: 95.23 kg

DRUGS (8)
  1. LYRICA [Suspect]
     Indication: DIABETIC NEUROPATHY
     Dosage: 150 MG, 2X/DAY
     Route: 048
  2. NEURONTIN [Suspect]
     Indication: DIABETIC NEUROPATHY
  3. GLUCOPHAGE [Concomitant]
  4. ACTOS [Concomitant]
  5. FUROSEMIDE [Concomitant]
  6. LANTUS [Concomitant]
  7. SYNTHROID [Concomitant]
  8. ACETYLSALICYLIC ACID [Concomitant]
     Dosage: 81 MG, UNK

REACTIONS (7)
  - Diabetic neuropathy [Recovered/Resolved]
  - Withdrawal syndrome [Recovered/Resolved]
  - Fatigue [Recovered/Resolved]
  - Headache [Recovered/Resolved]
  - Feeling abnormal [Recovered/Resolved]
  - Pain in extremity [Recovered/Resolved]
  - Nausea [Recovered/Resolved]
